FAERS Safety Report 11324334 (Version 1)
Quarter: 2015Q3

REPORT INFORMATION
  Report Type: Report from Study
  Country: NL (occurrence: NL)
  Receive Date: 20150730
  Receipt Date: 20150730
  Transmission Date: 20151125
  Serious: Yes (Death, Hospitalization)
  Sender: FDA-Public Use
  Company Number: NL-ACTELION-A-CH2015-121355

PATIENT
  Age: 38 Year
  Sex: Female
  Weight: 59 kg

DRUGS (14)
  1. TEGRETOL [Concomitant]
     Active Substance: CARBAMAZEPINE
  2. REVATIO [Concomitant]
     Active Substance: SILDENAFIL CITRATE
  3. FOLIC ACID. [Concomitant]
     Active Substance: FOLIC ACID
  4. PREDNISON [Concomitant]
     Active Substance: PREDNISONE
  5. CALCICHEW [Concomitant]
     Active Substance: CALCIUM CARBONATE
  6. NIFEDIPINE. [Concomitant]
     Active Substance: NIFEDIPINE
  7. TRACLEER [Suspect]
     Active Substance: BOSENTAN
     Indication: SCLERODERMA ASSOCIATED DIGITAL ULCER
     Dosage: 125 MG, BID
     Route: 048
     Dates: start: 20100127
  8. PARACETAMOL [Suspect]
     Active Substance: ACETAMINOPHEN
     Indication: INFECTION
     Route: 048
  9. MELOXICAM. [Concomitant]
     Active Substance: MELOXICAM
  10. METOTREXATE [Concomitant]
     Active Substance: METHOTREXATE SODIUM
  11. ASCAL [Concomitant]
     Active Substance: CARBASALATE
  12. TAVONIN [Concomitant]
  13. FLUCLOXACILLINE [Suspect]
     Active Substance: FLUCLOXACILLIN
     Indication: INFECTION
     Dosage: 1 G, QID
     Route: 065
     Dates: start: 20150503
  14. ZALDIAR [Concomitant]
     Active Substance: ACETAMINOPHEN\TRAMADOL HYDROCHLORIDE

REACTIONS (10)
  - Kussmaul respiration [Fatal]
  - General physical health deterioration [Unknown]
  - Toe amputation [Unknown]
  - Metabolic acidosis [Fatal]
  - Disease progression [Not Recovered/Not Resolved]
  - Necrosis [Not Recovered/Not Resolved]
  - Pneumonia [Unknown]
  - Toxicity to various agents [Unknown]
  - Skin ulcer [Not Recovered/Not Resolved]
  - Respiratory failure [Unknown]

NARRATIVE: CASE EVENT DATE: 20150112
